FAERS Safety Report 7453607-1 (Version None)
Quarter: 2011Q2

REPORT INFORMATION
  Report Type: 
  Country: None (occurrence: None)
  Receive Date: 20110502
  Receipt Date: 20110421
  Transmission Date: 20111010
  Serious: Yes (Hospitalization)
  Sender: FDA-Public Use
  Company Number: FR-ASTRAZENECA-2011SE23179

PATIENT
  Age: 18356 Day
  Sex: Female

DRUGS (7)
  1. LIORESAL [Suspect]
     Indication: MUSCLE CONTRACTURE
     Route: 048
     Dates: start: 20100906
  2. IMUREL [Suspect]
     Indication: MULTIPLE SCLEROSIS
     Route: 048
     Dates: start: 20050401, end: 20080301
  3. ZOMIG [Suspect]
     Indication: MIGRAINE
     Route: 048
  4. ZOLOFT [Suspect]
     Indication: DEPRESSION
     Route: 048
     Dates: start: 20060601
  5. TYSABRI [Suspect]
     Indication: MULTIPLE SCLEROSIS
     Route: 041
     Dates: start: 20080908
  6. XATRAL [Suspect]
     Indication: BLADDER DYSFUNCTION
     Route: 048
     Dates: start: 19980101
  7. MITOXANTRONE [Suspect]
     Indication: MULTIPLE SCLEROSIS
     Route: 042
     Dates: start: 20010301, end: 20010901

REACTIONS (1)
  - ENDOMETRIAL CANCER [None]
